FAERS Safety Report 9717243 (Version 1)
Quarter: 2013Q4

REPORT INFORMATION
  Report Type: Spontaneous
  Country: US (occurrence: US)
  Receive Date: 20131127
  Receipt Date: 20131127
  Transmission Date: 20140711
  Serious: Yes (Other)
  Sender: FDA-Public Use
  Company Number: US-PFIZER INC-2013336115

PATIENT
  Age: 63 Year
  Sex: Male
  Weight: 95.24 kg

DRUGS (3)
  1. LYRICA [Suspect]
     Indication: PAIN IN EXTREMITY
     Dosage: 75 MG, 2X/DAY
     Route: 048
     Dates: start: 201309, end: 2013
  2. LYRICA [Suspect]
     Dosage: 75 MG, 1X/DAY (ONCE AT NIGHT TIME)
     Route: 048
     Dates: start: 2013
  3. LYRICA [Suspect]
     Dosage: 75 MG
     Route: 048
     Dates: start: 2013

REACTIONS (7)
  - Off label use [Unknown]
  - Thrombosis [Unknown]
  - Syncope [Recovered/Resolved]
  - Neuropathy peripheral [Unknown]
  - Paraesthesia [Unknown]
  - Pain [Unknown]
  - Dizziness [Recovered/Resolved]
